FAERS Safety Report 16774879 (Version 1)
Quarter: 2019Q3

REPORT INFORMATION
  Report Type: Report from Study
  Country: IT (occurrence: IT)
  Receive Date: 20190905
  Receipt Date: 20190905
  Transmission Date: 20191005
  Serious: Yes (Hospitalization)
  Sender: FDA-Public Use
  Company Number: IT-ACCORD-153860

PATIENT
  Age: 66 Year
  Sex: Female

DRUGS (7)
  1. CARDIOASPIRIN [Interacting]
     Active Substance: ASPIRIN
     Indication: PRODUCT USED FOR UNKNOWN INDICATION
     Dosage: STRENGTH: 100 MG
     Route: 048
  2. LORAZEPAM. [Concomitant]
     Active Substance: LORAZEPAM
  3. PANTOPRAZOLE [Concomitant]
     Active Substance: PANTOPRAZOLE
  4. LEVOTHYROXINE. [Concomitant]
     Active Substance: LEVOTHYROXINE
  5. STILNOX [Concomitant]
     Active Substance: ZOLPIDEM TARTRATE
  6. CLOPIDOGREL [Suspect]
     Active Substance: CLOPIDOGREL BISULFATE
     Indication: PRODUCT USED FOR UNKNOWN INDICATION
     Route: 048
  7. VENLAFAXINE/VENLAFAXINE HYDROCHLORIDE [Concomitant]

REACTIONS (3)
  - Rectal haemorrhage [Unknown]
  - Anaemia [Unknown]
  - Drug interaction [Unknown]

NARRATIVE: CASE EVENT DATE: 20180928
